FAERS Safety Report 6759816-9 (Version None)
Quarter: 2010Q2

REPORT INFORMATION
  Report Type: 
  Country: None (occurrence: None)
  Receive Date: 20100608
  Receipt Date: 20100526
  Transmission Date: 20101027
  Serious: Yes (Other)
  Sender: FDA-Public Use
  Company Number: US-JNJFOC-20100600704

PATIENT
  Age: 53 Year
  Sex: Female
  Weight: 81.65 kg

DRUGS (3)
  1. ST. JOSEPH ENTERIC COATED [Suspect]
     Indication: CEREBROVASCULAR ACCIDENT PROPHYLAXIS
     Route: 048
  2. LISINOPRIL [Concomitant]
     Indication: HYPERTENSION
  3. NORVASC [Concomitant]
     Indication: HYPERTENSION

REACTIONS (2)
  - PRODUCT QUALITY ISSUE [None]
  - VAGINAL LESION [None]
